FAERS Safety Report 5743252-8 (Version None)
Quarter: 2008Q2

REPORT INFORMATION
  Report Type: 
  Country: None (occurrence: None)
  Receive Date: 20080519
  Receipt Date: 20080508
  Transmission Date: 20081010
  Serious: Yes (Hospitalization, Other)
  Sender: FDA-Public Use
  Company Number: JP-PFIZER INC-2008038221

PATIENT
  Sex: Male
  Weight: 51 kg

DRUGS (17)
  1. EPLERENONE [Suspect]
     Indication: HYPERTENSION
     Route: 048
     Dates: start: 20080321, end: 20080403
  2. LANIRAPID [Suspect]
     Indication: ATRIAL FIBRILLATION
     Route: 048
     Dates: start: 20080321, end: 20080403
  3. FUROSEMIDE [Suspect]
     Indication: ATRIAL FIBRILLATION
     Dates: start: 20080321, end: 20080403
  4. LOSARTAN POTASSIUM AND HYDROCHLOROTHIAZIDE [Concomitant]
     Dosage: TEXT:1 DF
     Route: 048
  5. DIGOXIN [Concomitant]
     Indication: ATRIAL FIBRILLATION
     Dosage: DAILY DOSE:.125MG
     Route: 065
  6. WARFARIN SODIUM [Concomitant]
     Dates: start: 20080321, end: 20080325
  7. PARIET [Concomitant]
     Indication: GASTRIC ULCER
     Dosage: DAILY DOSE:10MG
  8. ULCERLMIN [Concomitant]
     Indication: GASTRIC ULCER
     Dosage: TEXT:3 PACKAGES
  9. ALFAROL [Concomitant]
  10. RHEUMATREX [Concomitant]
  11. PREDNISOLONE [Concomitant]
  12. ATARAX [Concomitant]
  13. EBASTEL [Concomitant]
  14. CELECOXIB [Concomitant]
  15. FERROMIA [Concomitant]
     Indication: IRON DEFICIENCY ANAEMIA
     Dosage: TEXT:2 DF
     Route: 048
  16. ASPIRIN [Concomitant]
  17. OPALMON [Concomitant]
     Route: 048

REACTIONS (1)
  - WHITE BLOOD CELL COUNT DECREASED [None]
